FAERS Safety Report 12308880 (Version 1)
Quarter: 2016Q2

REPORT INFORMATION
  Report Type: Spontaneous
  Country: US (occurrence: None)
  Receive Date: 20160426
  Receipt Date: 20160426
  Transmission Date: 20160815
  Serious: Yes (Life-Threatening)
  Sender: FDA-Public Use
  Company Number: None

PATIENT
  Age: 64 Year
  Sex: Female
  Weight: 78 kg

DRUGS (1)
  1. NOREPINEPHRINE, 1 MG/ML 4 ML VIAL [Suspect]
     Active Substance: NOREPINEPHRINE BITARTRATE
     Indication: HYPOTENSION
     Route: 041

REACTIONS (2)
  - Cardio-respiratory arrest [None]
  - Bradycardia [None]

NARRATIVE: CASE EVENT DATE: 20160422
